FAERS Safety Report 18924009 (Version 1)
Quarter: 2021Q1

REPORT INFORMATION
  Report Type: Spontaneous
  Country: FR (occurrence: FR)
  Receive Date: 20210222
  Receipt Date: 20210222
  Transmission Date: 20210420
  Serious: Yes (Hospitalization)
  Sender: FDA-Public Use
  Company Number: FR-009507513-2102FRA006603

PATIENT
  Age: 67 Year
  Sex: Female
  Weight: 108 kg

DRUGS (10)
  1. VENLAFAXINE HYDROCHLORIDE. [Concomitant]
     Active Substance: VENLAFAXINE HYDROCHLORIDE
     Route: 048
  2. MERONEM [Suspect]
     Active Substance: MEROPENEM
     Indication: OSTEITIS
     Dosage: 2 GRAM, Q8H
     Route: 042
     Dates: start: 20201202, end: 20210108
  3. LEVOFLOXACIN. [Suspect]
     Active Substance: LEVOFLOXACIN
     Indication: OSTEITIS
     Dosage: 750 MILLIGRAM, QD
     Route: 048
     Dates: start: 20210105, end: 20210108
  4. LEVOTHYROX [Concomitant]
     Active Substance: LEVOTHYROXINE
     Route: 048
  5. DAPTOMYCIN. [Suspect]
     Active Substance: DAPTOMYCIN
     Indication: OSTEITIS
     Dosage: 850 MILLIGRAM, QD
     Route: 042
     Dates: start: 20201202, end: 20210105
  6. ACTISKENAN [Concomitant]
     Active Substance: MORPHINE SULFATE
     Route: 048
  7. AMLOR [Concomitant]
     Active Substance: AMLODIPINE BESYLATE
     Route: 048
  8. DEPAKOTE [Concomitant]
     Active Substance: DIVALPROEX SODIUM
     Route: 048
  9. RIFAMPIN. [Suspect]
     Active Substance: RIFAMPIN
     Dosage: 900 MILLIGRAM, QD
     Route: 048
     Dates: start: 20210105, end: 20210108
  10. LOVENOX [Concomitant]
     Active Substance: ENOXAPARIN SODIUM
     Route: 058

REACTIONS (1)
  - Agranulocytosis [Recovered/Resolved]

NARRATIVE: CASE EVENT DATE: 20210108
